FAERS Safety Report 5275772-7 (Version None)
Quarter: 2007Q1

REPORT INFORMATION
  Report Type: 
  Country: None (occurrence: None)
  Receive Date: 20070326
  Receipt Date: 20070312
  Transmission Date: 20070707
  Serious: Yes (Life-Threatening, Other)
  Sender: FDA-Public Use
  Company Number: J200700856

PATIENT
  Age: 77 Year
  Sex: Female

DRUGS (11)
  1. AMOXICILLIN TRIHYDRATE [Suspect]
     Dosage: 750MG TWICE PER DAY
     Route: 048
     Dates: start: 20070214, end: 20070215
  2. OMEPRAZOLE [Suspect]
     Route: 048
     Dates: end: 20070215
  3. CLARITHROMYCIN [Suspect]
     Dosage: 200MG TWICE PER DAY
     Route: 048
     Dates: start: 20070214, end: 20070215
  4. URSO [Concomitant]
     Dosage: 50MG THREE TIMES PER DAY
  5. AMARYL [Concomitant]
     Indication: DIABETES MELLITUS
     Dosage: 1MG FOUR TIMES PER DAY
  6. BASEN [Concomitant]
     Indication: DIABETES MELLITUS
     Dosage: .2MG THREE TIMES PER DAY
  7. CEROCRAL [Concomitant]
     Dosage: 20MG THREE TIMES PER DAY
  8. NORVASC [Concomitant]
     Indication: HYPERTENSION
     Dosage: 2.5MG TWICE PER DAY
  9. PURSENNID [Concomitant]
     Indication: CONSTIPATION
     Route: 048
  10. DEPAS [Concomitant]
     Indication: INSOMNIA
     Dosage: .5MG FOUR TIMES PER DAY
  11. BUFFERIN [Concomitant]
     Dosage: 81MG FOUR TIMES PER DAY

REACTIONS (3)
  - HAEMOPTYSIS [None]
  - PETECHIAE [None]
  - THROMBOCYTOPENIA [None]
